FAERS Safety Report 11520714 (Version 4)
Quarter: 2015Q4

REPORT INFORMATION
  Report Type: Spontaneous
  Country: US (occurrence: US)
  Receive Date: 20150918
  Receipt Date: 20151230
  Transmission Date: 20160304
  Serious: No
  Sender: FDA-Public Use
  Company Number: US-PFIZER INC-2015308905

PATIENT
  Age: 53 Year
  Sex: Female
  Weight: 71 kg

DRUGS (1)
  1. XELJANZ [Suspect]
     Active Substance: TOFACITINIB CITRATE
     Indication: RHEUMATOID ARTHRITIS
     Dosage: 10 MG, 2X/DAY
     Route: 048
     Dates: start: 201505, end: 201508

REACTIONS (3)
  - Upper respiratory tract infection [Recovered/Resolved]
  - Sinusitis [Recovered/Resolved]
  - Conjunctivitis [Recovered/Resolved]

NARRATIVE: CASE EVENT DATE: 201505
